FAERS Safety Report 11350637 (Version 1)
Quarter: 2015Q3

REPORT INFORMATION
  Report Type: Spontaneous
  Country: DE (occurrence: DE)
  Receive Date: 20150807
  Receipt Date: 20150807
  Transmission Date: 20151125
  Serious: Yes (Other)
  Sender: FDA-Public Use
  Company Number: GXKR2015DE003655

PATIENT
  Age: 45 Year
  Sex: Female

DRUGS (1)
  1. TRIAMHEXAL [Suspect]
     Active Substance: TRIAMCINOLONE
     Indication: PRODUCT USED FOR UNKNOWN INDICATION
     Route: 058
     Dates: start: 2012

REACTIONS (4)
  - Skin atrophy [Unknown]
  - Incorrect route of drug administration [Unknown]
  - Skin necrosis [Unknown]
  - Skin disorder [Unknown]

NARRATIVE: CASE EVENT DATE: 2012
